FAERS Safety Report 16684631 (Version 1)
Quarter: 2019Q3

REPORT INFORMATION
  Report Type: Report from Study
  Country: CA (occurrence: CA)
  Receive Date: 20190808
  Receipt Date: 20190808
  Transmission Date: 20191004
  Serious: Yes (Other)
  Sender: FDA-Public Use
  Company Number: CA-TEVA-2019-CA-1087429

PATIENT
  Age: 24 Year
  Sex: Female
  Weight: 58 kg

DRUGS (34)
  1. ACETAMINOPHEN/TRAMADOL HYDROCHLORIDE [Concomitant]
     Active Substance: ACETAMINOPHEN\TRAMADOL HYDROCHLORIDE
  2. AMITRIPTYLINE [Concomitant]
     Active Substance: AMITRIPTYLINE
  3. AZITHROMYCIN ANHYDROUS. [Concomitant]
     Active Substance: AZITHROMYCIN ANHYDROUS
  4. PANTOLOC [PANTOPRAZOLE] [Concomitant]
     Active Substance: PANTOPRAZOLE SODIUM
  5. PREMARIN [Concomitant]
     Active Substance: ESTROGENS, CONJUGATED
  6. RITUXAN [Suspect]
     Active Substance: RITUXIMAB
     Indication: GRAFT VERSUS HOST DISEASE
     Route: 042
  7. ACYCLOVIR. [Concomitant]
     Active Substance: ACYCLOVIR
  8. DIPHENHYDRAMINE HYDROCHLORIDE. [Concomitant]
     Active Substance: DIPHENHYDRAMINE HYDROCHLORIDE
  9. NAPROXEN. [Concomitant]
     Active Substance: NAPROXEN
  10. SALBUTAMOL [Concomitant]
     Active Substance: ALBUTEROL
  11. ACTONEL [Concomitant]
     Active Substance: RISEDRONATE SODIUM
  12. IMMUNOGLOBULIN G (HUMAN) [Concomitant]
  13. LYRICA [Concomitant]
     Active Substance: PREGABALIN
  14. STATEX [SIMVASTATIN] [Concomitant]
  15. GRAVOL [Concomitant]
     Active Substance: DIMENHYDRINATE
  16. ZOPICLONE [Concomitant]
     Active Substance: ZOPICLONE
  17. FOLIC ACID. [Concomitant]
     Active Substance: FOLIC ACID
  18. METHOXSALEN. [Concomitant]
     Active Substance: METHOXSALEN
  19. PREDNISONE. [Concomitant]
     Active Substance: PREDNISONE
  20. CYANOCOBALAMIN. [Concomitant]
     Active Substance: CYANOCOBALAMIN
  21. FLUOROMETHOLONE. [Concomitant]
     Active Substance: FLUOROMETHOLONE
     Route: 065
  22. TOBRADEX [Concomitant]
     Active Substance: DEXAMETHASONE\TOBRAMYCIN
  23. VITAMIN E [Concomitant]
     Active Substance: .ALPHA.-TOCOPHEROL
     Route: 065
  24. HYDROMORPHONE HYDROCHLORIDE. [Suspect]
     Active Substance: HYDROMORPHONE HYDROCHLORIDE
     Indication: PRODUCT USED FOR UNKNOWN INDICATION
     Route: 065
  25. RITUXAN [Suspect]
     Active Substance: RITUXIMAB
     Indication: ACUTE LYMPHOCYTIC LEUKAEMIA
     Route: 042
  26. BENADRYL [Concomitant]
     Active Substance: DIPHENHYDRAMINE HYDROCHLORIDE
  27. BETADERM [Concomitant]
     Active Substance: BETAMETHASONE VALERATE
  28. PENTAMIDINE [Concomitant]
     Active Substance: PENTAMIDINE
  29. TACROLIMUS. [Concomitant]
     Active Substance: TACROLIMUS
  30. VITAMIN B6 [Concomitant]
     Active Substance: PYRIDOXINE HYDROCHLORIDE
  31. BACLOFEN. [Concomitant]
     Active Substance: BACLOFEN
  32. DESOXIMETASONE. [Concomitant]
     Active Substance: DESOXIMETASONE
  33. FLUCONAZOLE. [Concomitant]
     Active Substance: FLUCONAZOLE
  34. GABAPENTIN. [Concomitant]
     Active Substance: GABAPENTIN
     Route: 065

REACTIONS (5)
  - Off label use [Unknown]
  - Dysphagia [Unknown]
  - Vomiting [Unknown]
  - Drug intolerance [Unknown]
  - Cardiac failure [Unknown]
